FAERS Safety Report 6805174-0 (Version None)
Quarter: 2010Q2

REPORT INFORMATION
  Report Type: 
  Country: None (occurrence: None)
  Receive Date: 20100628
  Receipt Date: 20071026
  Transmission Date: 20101027
  Serious: Yes (Disabling, Other)
  Sender: FDA-Public Use
  Company Number: US-PFIZER INC-2007066242

PATIENT
  Age: 71 Year
  Sex: Female
  Weight: 64.86 kg

DRUGS (1)
  1. NIFEDIPINE [Suspect]
     Indication: CARDIAC DISORDER
     Route: 048
     Dates: start: 20061201, end: 20070723

REACTIONS (2)
  - MUSCLE SPASMS [None]
  - MYALGIA [None]
